FAERS Safety Report 13668839 (Version 1)
Quarter: 2017Q2

REPORT INFORMATION
  Report Type: Not Available
  Country: BR (occurrence: BR)
  Receive Date: 20170620
  Receipt Date: 20170620
  Transmission Date: 20170830
  Serious: Yes (Death)
  Sender: FDA-Public Use
  Company Number: BR-IDTAUSTRALIA-2017-BR-000007

PATIENT
  Age: 65 Year
  Sex: Male

DRUGS (2)
  1. FLUCONAZOLE (NON-SPECIFIC) [Suspect]
     Active Substance: FLUCONAZOLE
     Dosage: 800MG/DAY
  2. AMPHOTERICIN B. [Suspect]
     Active Substance: AMPHOTERICIN B
     Dosage: 60MG/DAY
     Route: 042

REACTIONS (2)
  - Immune reconstitution inflammatory syndrome [Fatal]
  - Death [Fatal]
